FAERS Safety Report 26043204 (Version 1)
Quarter: 2025Q4

REPORT INFORMATION
  Report Type: Spontaneous
  Country: US (occurrence: US)
  Receive Date: 20251113
  Receipt Date: 20251113
  Transmission Date: 20260118
  Serious: Yes (Other)
  Sender: MERCK SHARP & DOHME LLC
  Company Number: US-009507513-2346480

PATIENT
  Age: 71 Year
  Sex: Female

DRUGS (1)
  1. PEMBROLIZUMAB [Suspect]
     Active Substance: PEMBROLIZUMAB
     Indication: Non-small cell lung cancer metastatic
     Dosage: 200MG PEMBROLIZUMAB EVERY THREE WEEKS OVER 18 MONTHS

REACTIONS (1)
  - Acute febrile neutrophilic dermatosis [Recovering/Resolving]
